FAERS Safety Report 8821369 (Version 2)
Quarter: 2013Q4

REPORT INFORMATION
  Report Type: Spontaneous
  Country: US (occurrence: US)
  Receive Date: 20121002
  Receipt Date: 20131224
  Transmission Date: 20140711
  Serious: Yes (Other)
  Sender: FDA-Public Use
  Company Number: US-ASTRAZENECA-2012SE73797

PATIENT
  Age: 65 Year
  Sex: Female
  Weight: 68 kg

DRUGS (7)
  1. NEXIUM [Suspect]
     Indication: GASTROOESOPHAGEAL REFLUX DISEASE
     Route: 048
     Dates: start: 2001, end: 20131205
  2. VITAMINS [Concomitant]
     Indication: VITAMIN SUPPLEMENTATION
     Dosage: DAILY
     Route: 048
  3. METFORMIN [Concomitant]
     Indication: BLOOD GLUCOSE ABNORMAL
     Route: 048
     Dates: start: 2012
  4. SIMVASTATIN [Concomitant]
     Indication: BLOOD CHOLESTEROL ABNORMAL
     Route: 048
     Dates: start: 2012
  5. TRAMADOL [Concomitant]
     Indication: PAIN
     Route: 048
  6. ALLEVE [Concomitant]
     Indication: ARTHRITIS
     Route: 048
  7. ALLEVE [Concomitant]
     Indication: ARTHRITIS
     Route: 048

REACTIONS (7)
  - Benign breast neoplasm [Unknown]
  - Adverse event [Unknown]
  - Body height decreased [Unknown]
  - Weight decreased [Unknown]
  - Memory impairment [Unknown]
  - Oropharyngeal pain [Unknown]
  - Drug dose omission [Unknown]
